FAERS Safety Report 10733173 (Version 4)
Quarter: 2015Q2

REPORT INFORMATION
  Report Type: Spontaneous
  Country: RU (occurrence: None)
  Receive Date: 20150120
  Receipt Date: 20150528
  Transmission Date: 20150821
  Serious: Yes (Other)
  Sender: FDA-Public Use
  Company Number: B1006356A

PATIENT
  Sex: Male

DRUGS (7)
  1. LAMIVUDINE-HIV [Suspect]
     Active Substance: LAMIVUDINE
     Indication: HIV INFECTION
     Dosage: 1D
     Dates: start: 201312
  2. ABACAVIR [Concomitant]
     Active Substance: ABACAVIR
  3. ZIAGEN [Suspect]
     Active Substance: ABACAVIR SULFATE
     Indication: HIV INFECTION
     Dosage: 1D
     Dates: start: 201312
  4. GAVISCON [Suspect]
     Active Substance: ALUMINUM HYDROXIDE\MAGNESIUM CARBONATE
     Indication: DUODENOGASTRIC REFLUX
     Dosage: 1 DF
  5. KIVEXA [Suspect]
     Active Substance: ABACAVIR SULFATE\LAMIVUDINE
     Indication: HIV INFECTION
  6. STOCRIN [Suspect]
     Active Substance: EFAVIRENZ
     Indication: HIV INFECTION
     Dosage: 1D
     Dates: start: 201312
  7. EFAVIRENZ [Concomitant]
     Active Substance: EFAVIRENZ

REACTIONS (33)
  - Initial insomnia [None]
  - Influenza like illness [None]
  - Pharyngeal mucosa atrophy [None]
  - Gastritis haemorrhagic [None]
  - Pharyngeal disorder [None]
  - Nasal obstruction [None]
  - Gastrooesophageal reflux disease [None]
  - Hyperchlorhydria [None]
  - Chronic gastritis [None]
  - Respiratory tract infection viral [None]
  - Oropharyngeal pain [None]
  - Nail discolouration [None]
  - Nervousness [None]
  - Nasopharyngitis [None]
  - Duodenitis [None]
  - Head discomfort [None]
  - Rhinorrhoea [None]
  - Lymph node pain [None]
  - Tongue coated [None]
  - Gastric polyps [None]
  - Hiatus hernia [None]
  - Erosive oesophagitis [None]
  - Pharyngeal erosion [None]
  - Gastritis [None]
  - Asthenia [None]
  - Musculoskeletal discomfort [None]
  - Pharyngeal erythema [None]
  - Pyrexia [None]
  - Tonsillar inflammation [None]
  - Fungal test positive [None]
  - Pneumonia streptococcal [None]
  - Neurosis [None]
  - Gastric disorder [None]

NARRATIVE: CASE EVENT DATE: 20140823
